FAERS Safety Report 5283458-8 (Version None)
Quarter: 2007Q2

REPORT INFORMATION
  Report Type: 
  Country: None (occurrence: None)
  Receive Date: 20070402
  Receipt Date: 20070327
  Transmission Date: 20071010
  Serious: Yes (Death, Other)
  Sender: FDA-Public Use
  Company Number: AU-MERCK-0703AUS00103

PATIENT
  Sex: Male

DRUGS (2)
  1. ZETIA [Suspect]
     Route: 048
  2. ZOCOR [Concomitant]
     Route: 065

REACTIONS (3)
  - CARDIAC DISORDER [None]
  - CHRONIC HEPATIC FAILURE [None]
  - DEATH [None]
